FAERS Safety Report 6129181-9 (Version None)
Quarter: 2009Q1

REPORT INFORMATION
  Report Type: 
  Country: None (occurrence: None)
  Receive Date: 20090324
  Receipt Date: 20090318
  Transmission Date: 20090719
  Serious: Yes (Other)
  Sender: FDA-Public Use
  Company Number: US-BAYER-200915849NA

PATIENT
  Sex: Female

DRUGS (1)
  1. MIRENA [Suspect]
     Indication: DRUG USE FOR UNKNOWN INDICATION
     Route: 015
     Dates: start: 20070501, end: 20090306

REACTIONS (4)
  - ENDOMETRITIS [None]
  - PELVIC INFECTION [None]
  - PELVIC PAIN [None]
  - STAPHYLOCOCCAL INFECTION [None]
